FAERS Safety Report 4728744-2 (Version None)
Quarter: 2005Q3

REPORT INFORMATION
  Report Type: 
  Country: None (occurrence: None)
  Receive Date: 20050729
  Receipt Date: 20050727
  Transmission Date: 20060218
  Serious: Yes (Hospitalization)
  Sender: FDA-Public Use
  Company Number: US-GLAXOSMITHKLINE-A0567927A

PATIENT
  Sex: Male

DRUGS (5)
  1. WELLBUTRIN [Suspect]
     Indication: DRUG USE FOR UNKNOWN INDICATION
     Dosage: 150MG PER DAY
     Route: 048
     Dates: start: 20050719
  2. COUMADIN [Concomitant]
  3. HYDROCHLOROTHIAZIDE [Concomitant]
  4. METOPROLOL [Concomitant]
  5. PREVACID [Concomitant]

REACTIONS (3)
  - ABDOMINAL DISCOMFORT [None]
  - CHOLELITHIASIS [None]
  - CONSTIPATION [None]
